FAERS Safety Report 10163316 (Version 1)
Quarter: 2014Q2

REPORT INFORMATION
  Report Type: Spontaneous
  Country: US (occurrence: US)
  Receive Date: 20140509
  Receipt Date: 20140509
  Transmission Date: 20141212
  Serious: No
  Sender: FDA-Public Use
  Company Number: US-B.I. PHARMACEUTICALS,INC./RIDGEFIELD-2014-BI-19443BP

PATIENT
  Age: 78 Year
  Sex: Male

DRUGS (12)
  1. COMBIVENT [Suspect]
     Indication: WHEEZING
     Dosage: STRENGTH: 20 MCG / 100 MCG; DAILY DOSE: 80 MCG/400 MCG
     Route: 055
     Dates: start: 201402, end: 20140429
  2. MORPHINE SULFATE [Concomitant]
     Indication: BACK PAIN
     Route: 048
  3. FENTANYL [Concomitant]
     Indication: BACK PAIN
     Dosage: FORMULATION: PATCH; DAILY DOSE 2 PATCHES
     Route: 061
  4. METOPROLOL [Concomitant]
     Indication: HYPERTENSION
     Dosage: 25 MG
     Route: 048
  5. GABAPENTIN [Concomitant]
     Indication: NEURALGIA
     Dosage: 600 MG
     Route: 048
  6. NEXIUM [Concomitant]
     Indication: GASTRITIS
     Dosage: 40 MG
     Route: 048
  7. TEMAZEPAM [Concomitant]
     Indication: INSOMNIA
     Dosage: 30 MG
     Route: 048
  8. BISACODYL [Concomitant]
     Indication: CONSTIPATION
     Dosage: 10 MG
     Route: 054
  9. BISACODYL [Concomitant]
     Route: 048
  10. DIAZEPAM [Concomitant]
     Indication: HYPERTENSION
     Route: 048
  11. DOCUSATE SODIUM [Concomitant]
     Indication: CONSTIPATION
     Dosage: 300 MG
     Route: 048
  12. FLUTICASONE [Concomitant]
     Indication: SINUSITIS
     Dosage: FORMULATION: NASAL SPRAY, STRENGTH: 1 SPRAY EACH NOSTRIL; DAILY DOSE: 4 SPRAYS
     Route: 045

REACTIONS (9)
  - Heart rate increased [Not Recovered/Not Resolved]
  - Oropharyngeal pain [Not Recovered/Not Resolved]
  - Dysphagia [Not Recovered/Not Resolved]
  - Nervousness [Not Recovered/Not Resolved]
  - Dizziness [Not Recovered/Not Resolved]
  - Vision blurred [Not Recovered/Not Resolved]
  - Pruritus generalised [Recovered/Resolved]
  - Pharyngeal oedema [Unknown]
  - Off label use [Unknown]
